FAERS Safety Report 25847323 (Version 2)
Quarter: 2025Q3

REPORT INFORMATION
  Report Type: Spontaneous
  Country: JP (occurrence: JP)
  Receive Date: 20250925
  Receipt Date: 20250929
  Transmission Date: 20251020
  Serious: Yes (Other)
  Sender: PFIZER
  Company Number: JP-PFIZER INC-202500187697

PATIENT

DRUGS (1)
  1. ATGAM [Suspect]
     Active Substance: EQUINE THYMOCYTE IMMUNE GLOBULIN
     Dates: start: 20250910

REACTIONS (2)
  - Haemorrhage subcutaneous [Unknown]
  - Purpura [Unknown]

NARRATIVE: CASE EVENT DATE: 20250922
